FAERS Safety Report 13213342 (Version 2)
Quarter: 2017Q1

REPORT INFORMATION
  Report Type: Spontaneous
  Country: US (occurrence: US)
  Receive Date: 20170210
  Receipt Date: 20170330
  Transmission Date: 20170428
  Serious: Yes (Other)
  Sender: FDA-Public Use
  Company Number: US-SA-2017SA019240

PATIENT
  Age: 67 Year
  Sex: Male
  Weight: 108.86 kg

DRUGS (4)
  1. VICTOZA [Concomitant]
     Active Substance: LIRAGLUTIDE
  2. LANTUS SOLOSTAR [Suspect]
     Active Substance: INSULIN GLARGINE
     Dosage: DOSE:60 UNIT(S)
     Route: 065
     Dates: start: 2012, end: 20170107
  3. INVOKANA [Concomitant]
     Active Substance: CANAGLIFLOZIN
  4. SOLOSTAR [Concomitant]
     Active Substance: DEVICE
     Dates: start: 2012, end: 20170107

REACTIONS (3)
  - Drug ineffective [Unknown]
  - Cerebrovascular accident [Unknown]
  - Weight increased [Unknown]

NARRATIVE: CASE EVENT DATE: 20170102
